FAERS Safety Report 8986105 (Version 1)
Quarter: 2012Q4

REPORT INFORMATION
  Report Type: Spontaneous
  Country: US (occurrence: None)
  Receive Date: 20121219
  Receipt Date: 20121219
  Transmission Date: 20130627
  Serious: Yes (Hospitalization)
  Sender: FDA-Public Use
  Company Number: None

PATIENT
  Age: 49 Year
  Sex: Female
  Weight: 77.66 kg

DRUGS (2)
  1. VORINOSTAT [Suspect]
     Indication: PANCREATIC CANCER
     Route: 048
     Dates: start: 20120521, end: 20120618
  2. CAPECITABINE [Suspect]
     Indication: PANCREATIC CANCER
     Route: 048
     Dates: start: 20120521, end: 20120604

REACTIONS (3)
  - Pancreatitis [None]
  - Urinary tract infection [None]
  - Cholangitis [None]
